FAERS Safety Report 18974282 (Version 1)
Quarter: 2021Q1

REPORT INFORMATION
  Report Type: Spontaneous
  Country: CN (occurrence: CN)
  Receive Date: 20210305
  Receipt Date: 20210305
  Transmission Date: 20210420
  Serious: Yes (Other)
  Sender: FDA-Public Use
  Company Number: CN-PFIZER INC-2021187301

PATIENT
  Age: 70 Year
  Sex: Male

DRUGS (3)
  1. SOLU?MEDROL [Suspect]
     Active Substance: METHYLPREDNISOLONE SODIUM SUCCINATE
     Indication: ASTHMA
  2. SOLU?MEDROL [Suspect]
     Active Substance: METHYLPREDNISOLONE SODIUM SUCCINATE
     Indication: INFLAMMATION
  3. SOLU?MEDROL [Suspect]
     Active Substance: METHYLPREDNISOLONE SODIUM SUCCINATE
     Indication: CHRONIC OBSTRUCTIVE PULMONARY DISEASE
     Dosage: 40 MG, 2X/DAY
     Route: 042
     Dates: start: 20210201, end: 20210205

REACTIONS (4)
  - Unresponsive to stimuli [Unknown]
  - Depressed mood [Unknown]
  - Mental disorder [Recovering/Resolving]
  - Disorganised speech [Unknown]

NARRATIVE: CASE EVENT DATE: 20210204
